FAERS Safety Report 8207445-2 (Version None)
Quarter: 2012Q1

REPORT INFORMATION
  Report Type: 
  Country: None (occurrence: None)
  Receive Date: 20120314
  Receipt Date: 20120309
  Transmission Date: 20120608
  Serious: Yes (Death)
  Sender: FDA-Public Use
  Company Number: US-ASTELLAS-2012US002613

PATIENT
  Sex: Female

DRUGS (1)
  1. ERLOTINIB HYDROCHLORIDE [Suspect]
     Indication: RECTOSIGMOID CANCER
     Dosage: 100 MG, UID/QD
     Route: 048
     Dates: start: 20120103, end: 20120209

REACTIONS (2)
  - DEATH [None]
  - OFF LABEL USE [None]
